FAERS Safety Report 10331593 (Version 1)
Quarter: 2014Q3

REPORT INFORMATION
  Report Type: Spontaneous
  Country: US (occurrence: None)
  Receive Date: 20140721
  Receipt Date: 20140721
  Transmission Date: 20150326
  Serious: Yes (Life-Threatening, Hospitalization)
  Sender: FDA-Public Use
  Company Number: None

PATIENT
  Age: 66 Year
  Sex: Male
  Weight: 68.49 kg

DRUGS (21)
  1. SOVALDI [Suspect]
     Active Substance: SOFOSBUVIR
     Indication: HEPATITIS C VIRUS TEST POSITIVE
     Dosage: 1 TABLET
     Route: 048
     Dates: start: 20140311, end: 20140517
  2. EPOETIN (PROCRIT) [Concomitant]
  3. ATORVASTATIN [Concomitant]
     Active Substance: ATORVASTATIN
  4. POTASSIUM CHLORIDE (KLOR-CON M20) [Concomitant]
  5. LASIX + DIURIL [Concomitant]
  6. GLIPIZIDE (GLUCOTROL) [Concomitant]
  7. ALLOPURINOL (ZYLOPRIM) [Concomitant]
  8. SOTALOL (BETAPACE) [Concomitant]
  9. OLYSIO [Suspect]
     Active Substance: SIMEPREVIR
     Indication: HEPATITIS C VIRUS TEST POSITIVE
     Dosage: 1 CAPSULE
     Dates: start: 20140311, end: 20140517
  10. CHLOROTHIAZIDE (DIURIL) [Concomitant]
  11. FUROSEMIDE (LASIX) [Concomitant]
  12. SPIRONOLACTONE (ALDACTONE) [Concomitant]
  13. DESONIDE (DESOWEN/TRIDESILON) [Concomitant]
  14. ZOTRESS [Concomitant]
  15. SOVALDI [Suspect]
     Active Substance: SOFOSBUVIR
     Dosage: 1 TABLET
     Route: 048
     Dates: start: 20140311, end: 20140517
  16. TORSEMIDE (DEMADEX) [Concomitant]
  17. MYCOPHENOLATE (CELLCEPT) [Concomitant]
  18. OLYSIO [Suspect]
     Active Substance: SIMEPREVIR
     Dosage: 1 CAPSULE
     Dates: start: 20140311, end: 20140517
  19. LEVOTHYROXINE (LEVOTHROID/SYNTHROID) [Concomitant]
  20. GABAPENTIN (NEURONTIN) [Concomitant]
  21. ZOTRESS [Concomitant]

REACTIONS (1)
  - Rhabdomyolysis [None]

NARRATIVE: CASE EVENT DATE: 20140501
